FAERS Safety Report 8851709 (Version 1)
Quarter: 2012Q4

REPORT INFORMATION
  Report Type: Spontaneous
  Country: US (occurrence: None)
  Receive Date: 20121018
  Receipt Date: 20121018
  Transmission Date: 20130627
  Serious: Yes (Other)
  Sender: FDA-Public Use
  Company Number: None

PATIENT
  Age: 36 Year
  Sex: Female
  Weight: 43.09 kg

DRUGS (2)
  1. ENOXAPARIN SODIUM [Suspect]
     Indication: PREGNANCY
     Dates: start: 20121010, end: 20121010
  2. ENOXAPARIN SODIUM [Suspect]
     Indication: LAB TEST ABNORMAL
     Dates: start: 20121010, end: 20121010

REACTIONS (17)
  - Feeling hot [None]
  - Hyperhidrosis [None]
  - Dizziness [None]
  - Dizziness [None]
  - Flushing [None]
  - Superficial vein prominence [None]
  - Ocular vascular disorder [None]
  - Ocular hyperaemia [None]
  - Decreased appetite [None]
  - Feeling cold [None]
  - Fatigue [None]
  - Yawning [None]
  - Nervousness [None]
  - Anxiety [None]
  - Feeling abnormal [None]
  - Maternal exposure during pregnancy [None]
  - Feeling abnormal [None]
